FAERS Safety Report 10471369 (Version 11)
Quarter: 2015Q3

REPORT INFORMATION
  Report Type: Spontaneous
  Country: US (occurrence: US)
  Receive Date: 20140923
  Receipt Date: 20150819
  Transmission Date: 20151125
  Serious: Yes (Hospitalization, Other)
  Sender: FDA-Public Use
  Company Number: US-PFIZER INC-2014262188

PATIENT
  Age: 49 Year
  Sex: Female
  Weight: 63.39 kg

DRUGS (14)
  1. LYRICA [Suspect]
     Active Substance: PREGABALIN
     Indication: FIBROMYALGIA
     Dosage: 300 MG, 3X/DAY
     Route: 048
     Dates: start: 200805, end: 201507
  2. XANAX-XR [Concomitant]
     Dosage: 3 MG, UNK
     Dates: start: 200407
  3. METHADONE [Concomitant]
     Active Substance: METHADONE HYDROCHLORIDE
     Indication: PAIN
     Dosage: 10 MG, UNK
     Dates: start: 201211
  4. TORSEMIDE. [Concomitant]
     Active Substance: TORSEMIDE
     Dosage: 1/3 OF 20MG ONCE DAILY
     Route: 048
     Dates: start: 2010
  5. DIAZEPAM. [Concomitant]
     Active Substance: DIAZEPAM
     Dosage: 10 MG, 3X/DAY
     Route: 048
  6. VALIUM [Concomitant]
     Active Substance: DIAZEPAM
     Dosage: UNK, 3X/DAY
  7. LYRICA [Suspect]
     Active Substance: PREGABALIN
     Indication: PAIN
     Dosage: 300 MG, 2X/DAY
     Route: 048
     Dates: start: 2008
  8. LYRICA [Suspect]
     Active Substance: PREGABALIN
     Indication: NEURALGIA
     Dosage: 900 MG, DAILY
     Route: 048
     Dates: start: 2010
  9. SEROQUEL [Concomitant]
     Active Substance: QUETIAPINE FUMARATE
     Dosage: 25 MG IN THE MORNING AND 50 MG ORALLY AT NIGHT
     Route: 048
     Dates: start: 2005
  10. LIPITOR [Concomitant]
     Active Substance: ATORVASTATIN CALCIUM
     Dosage: UNK
     Dates: start: 201108
  11. XANAX-XR [Concomitant]
     Dosage: 3 MG, 2X/DAY
     Dates: start: 2003
  12. SEROQUEL [Concomitant]
     Active Substance: QUETIAPINE FUMARATE
     Dosage: 100 MG, UNK
     Dates: start: 200407
  13. METHADONE [Concomitant]
     Active Substance: METHADONE HYDROCHLORIDE
     Dosage: 50 MG, DAILY
     Route: 048
     Dates: start: 2013
  14. LYRICA [Suspect]
     Active Substance: PREGABALIN
     Indication: COMPLEX REGIONAL PAIN SYNDROME
     Dosage: 300 MG, 3X/DAY
     Route: 048
     Dates: start: 200801

REACTIONS (15)
  - Drug ineffective for unapproved indication [Not Recovered/Not Resolved]
  - Dysphagia [Not Recovered/Not Resolved]
  - Osteoarthritis [Recovering/Resolving]
  - Crying [Unknown]
  - Arthralgia [Not Recovered/Not Resolved]
  - Drug withdrawal syndrome [Unknown]
  - Arthralgia [Unknown]
  - Vomiting [Unknown]
  - Suicidal ideation [Unknown]
  - Back pain [Unknown]
  - Condition aggravated [Unknown]
  - Diarrhoea [Unknown]
  - Overdose [Unknown]
  - Pain [Unknown]
  - Hypoaesthesia [Not Recovered/Not Resolved]

NARRATIVE: CASE EVENT DATE: 200801
